FAERS Safety Report 18698839 (Version 1)
Quarter: 2021Q1

REPORT INFORMATION
  Report Type: Spontaneous
  Country: US (occurrence: US)
  Receive Date: 20210105
  Receipt Date: 20210105
  Transmission Date: 20210419
  Serious: No
  Sender: FDA-Public Use
  Company Number: US-ASTRAZENECA-2021A000641

PATIENT
  Age: 971 Month
  Sex: Female
  Weight: 57.2 kg

DRUGS (5)
  1. ALBUTEROL. [Concomitant]
     Active Substance: ALBUTEROL
     Indication: ASTHMA
     Route: 055
  2. VALSARTAN. [Concomitant]
     Active Substance: VALSARTAN
     Route: 048
  3. SYMBICORT [Suspect]
     Active Substance: BUDESONIDE\FORMOTEROL FUMARATE DIHYDRATE
     Indication: ASTHMA
     Dosage: 160/4.5 MCG 2 PUFFS, TWO TIMES A DAY
     Route: 055
  4. NEXIUM [Suspect]
     Active Substance: ESOMEPRAZOLE MAGNESIUM
     Indication: GASTROOESOPHAGEAL REFLUX DISEASE
     Route: 048
  5. SINGULAIR [Concomitant]
     Active Substance: MONTELUKAST SODIUM
     Indication: ASTHMA
     Route: 048

REACTIONS (7)
  - Device issue [Unknown]
  - Bronchitis [Unknown]
  - Intentional device misuse [Unknown]
  - Arthritis [Unknown]
  - Asthma [Unknown]
  - Muscular weakness [Unknown]
  - Body height decreased [Unknown]

NARRATIVE: CASE EVENT DATE: 202012
